FAERS Safety Report 16687827 (Version 1)
Quarter: 2019Q3

REPORT INFORMATION
  Report Type: Spontaneous
  Country: JP (occurrence: JP)
  Receive Date: 20190809
  Receipt Date: 20190809
  Transmission Date: 20191004
  Serious: Yes (Death, Hospitalization, Other)
  Sender: FDA-Public Use
  Company Number: JP-ACTELION-A-CH2019-193952

PATIENT
  Age: 27 Year
  Sex: Female

DRUGS (1)
  1. BOSENTAN. [Suspect]
     Active Substance: BOSENTAN
     Indication: NON-CIRRHOTIC PORTAL HYPERTENSION
     Route: 048

REACTIONS (13)
  - Ovarian haemorrhage [Unknown]
  - Oophorectomy bilateral [Unknown]
  - Platelet count decreased [Unknown]
  - Haemoptysis [Fatal]
  - Pulmonary artery aneurysm [Unknown]
  - General physical health deterioration [Unknown]
  - Haemorrhage [Unknown]
  - Disseminated intravascular coagulation [Unknown]
  - Cerebellar haemorrhage [Fatal]
  - Tooth extraction [Unknown]
  - Decompressive craniectomy [Unknown]
  - Pulmonary artery thrombosis [Unknown]
  - Coagulation factor decreased [Unknown]
